FAERS Safety Report 8890870 (Version 1)
Quarter: 2012Q4

REPORT INFORMATION
  Report Type: 
  Country: CH (occurrence: CH)
  Receive Date: 20121106
  Receipt Date: 20121106
  Transmission Date: 20130627
  Serious: Yes (Hospitalization)
  Sender: FDA-Public Use
  Company Number: CH-ELI_LILLY_AND_COMPANY-CH201210009114

PATIENT
  Age: 46 Year
  Sex: Male

DRUGS (13)
  1. ZYPREXA [Suspect]
     Indication: DEPRESSION
     Dosage: 5 mg, qd
     Route: 048
     Dates: start: 20110706
  2. TRUXAL                             /00012101/ [Concomitant]
     Indication: NERVOUSNESS
     Dosage: 1 DF, UNK
     Route: 048
     Dates: start: 20110706, end: 20110706
  3. LEVEMIR [Concomitant]
     Dosage: 22 IU, qd
     Route: 058
  4. GLUCOPHAGE                              /SCH/ [Concomitant]
     Dosage: 1000 mg, bid
     Route: 048
  5. GALVUS [Concomitant]
     Dosage: 50 mg, qd
     Route: 048
  6. LIPANTHYL [Concomitant]
     Dosage: 200 mg, qd
     Route: 048
  7. CRESTOR                                 /NET/ [Concomitant]
     Dosage: 20 mg, qd
     Route: 048
  8. EICOSAPEN [Concomitant]
     Dosage: 1 DF, UNK
     Route: 048
  9. ATACAND PLUS                            /SCH/ [Concomitant]
     Dosage: 1 DF (16/12.5 mg), qd
     Route: 048
  10. NEBILET [Concomitant]
     Dosage: 1 DF, UNK
     Route: 048
  11. AMLODIPIN SANDOZ                   /00972404/ [Concomitant]
     Dosage: 10 mg, qd
     Route: 048
  12. ASPIRIN CARDIO [Concomitant]
     Dosage: 100 mg, qd
     Route: 048
  13. ORFIRIL LONG                            /SWE/ [Concomitant]
     Dosage: 1000 mg, qd
     Route: 048

REACTIONS (3)
  - Restlessness [Recovered/Resolved]
  - Anxiety [Recovered/Resolved]
  - Muscle spasms [Recovered/Resolved]
